FAERS Safety Report 19438728 (Version 1)
Quarter: 2021Q2

REPORT INFORMATION
  Report Type: Spontaneous
  Country: PT (occurrence: PT)
  Receive Date: 20210618
  Receipt Date: 20210618
  Transmission Date: 20210717
  Serious: Yes (Other)
  Sender: FDA-Public Use
  Company Number: PT-MYLANLABS-2021M1035409

PATIENT
  Age: 65 Year
  Sex: Female

DRUGS (1)
  1. VANCOMICINA MYLAN [Suspect]
     Active Substance: VANCOMYCIN
     Indication: PRODUCT USED FOR UNKNOWN INDICATION
     Dosage: UNK
     Route: 042
     Dates: start: 2020, end: 2020

REACTIONS (1)
  - Administration related reaction [Recovered/Resolved]

NARRATIVE: CASE EVENT DATE: 2020
